FAERS Safety Report 9858250 (Version 1)
Quarter: 2014Q1

REPORT INFORMATION
  Report Type: Spontaneous
  Country: US (occurrence: None)
  Receive Date: 20140130
  Receipt Date: 20140130
  Transmission Date: 20141002
  Serious: Yes (Other)
  Sender: FDA-Public Use
  Company Number: None

PATIENT
  Age: 30 Year
  Sex: Female
  Weight: 45.81 kg

DRUGS (1)
  1. METRONIDAZOLE (FLAGYL) 500MG [Suspect]
     Indication: INFLAMMATION
     Route: 048
     Dates: start: 20140101, end: 20140109

REACTIONS (5)
  - Anxiety [None]
  - Inflammation [None]
  - Panic attack [None]
  - Atrial flutter [None]
  - Insomnia [None]
